FAERS Safety Report 15925404 (Version 1)
Quarter: 2019Q1

REPORT INFORMATION
  Report Type: Spontaneous
  Country: US (occurrence: US)
  Receive Date: 20190206
  Receipt Date: 20190206
  Transmission Date: 20190417
  Serious: Yes (Life-Threatening)
  Sender: FDA-Public Use
  Company Number: None

PATIENT
  Age: 37 Year
  Sex: Female
  Weight: 72.45 kg

DRUGS (7)
  1. MAGNESIUM [Concomitant]
     Active Substance: MAGNESIUM
  2. MULTIVITAMINS [Concomitant]
     Active Substance: VITAMINS
  3. ATIVAN [Concomitant]
     Active Substance: LORAZEPAM
  4. BIOTIN [Concomitant]
     Active Substance: BIOTIN
  5. LORAZEPAM. [Suspect]
     Active Substance: LORAZEPAM
     Indication: MEDICAL PROCEDURE
     Dosage: ?          QUANTITY:1 TABLET(S);?
     Route: 048
     Dates: start: 20190205
  6. COQ10 [Concomitant]
     Active Substance: UBIDECARENONE
  7. LITHIUM. [Concomitant]
     Active Substance: LITHIUM

REACTIONS (4)
  - Hypertension [None]
  - General symptom [None]
  - Dyspnoea [None]
  - Heart rate increased [None]

NARRATIVE: CASE EVENT DATE: 20190206
